FAERS Safety Report 8556360-3 (Version None)
Quarter: 2012Q3

REPORT INFORMATION
  Report Type: 
  Country: None (occurrence: None)
  Receive Date: 20120801
  Receipt Date: 20120724
  Transmission Date: 20120928
  Serious: Yes (Other)
  Sender: FDA-Public Use
  Company Number: PHHY2012CA065371

PATIENT
  Age: 51 Year
  Sex: Female
  Weight: 49 kg

DRUGS (3)
  1. GLEEVEC [Suspect]
     Dosage: 100 MG, ONE EVERY DAY
     Route: 048
  2. GLEEVEC [Suspect]
     Dosage: 400 MG, ONE EVERY DAY
     Route: 048
  3. IRON DEXTRAN [Concomitant]

REACTIONS (3)
  - UVEITIS [None]
  - OCULAR HYPERAEMIA [None]
  - EYE PAIN [None]
